FAERS Safety Report 10250736 (Version 2)
Quarter: 2014Q2

REPORT INFORMATION
  Report Type: Spontaneous
  Country: JP (occurrence: JP)
  Receive Date: 20140620
  Receipt Date: 20140620
  Transmission Date: 20141212
  Serious: Yes (Hospitalization, Other)
  Sender: FDA-Public Use
  Company Number: JP-B.I. PHARMACEUTICALS,INC./RIDGEFIELD-2014-BI-24631NB

PATIENT
  Age: 73 Year
  Sex: Male
  Weight: 44 kg

DRUGS (7)
  1. TRAZENTA [Suspect]
     Indication: DIABETES MELLITUS
     Dosage: 5 MG
     Route: 048
     Dates: end: 20140528
  2. RIFAMPICIN [Suspect]
     Indication: TUBERCULOSIS
     Dosage: 150 MG
     Route: 065
     Dates: start: 20140519, end: 20140528
  3. ETHAMBUTOL HYDROCHLORIDE [Suspect]
     Indication: TUBERCULOSIS
     Dosage: 250 MG
     Route: 065
     Dates: start: 20140519, end: 20140528
  4. PYRAMIDE [Suspect]
     Indication: TUBERCULOSIS
     Dosage: 1 G
     Route: 065
     Dates: start: 20140519, end: 20140528
  5. PYDOXAL [Suspect]
     Indication: PRODUCT USED FOR UNKNOWN INDICATION
     Route: 065
     Dates: start: 20140519
  6. ISCOTIN [Suspect]
     Indication: PRODUCT USED FOR UNKNOWN INDICATION
     Route: 065
     Dates: start: 20140519
  7. PURSENNID [Suspect]
     Indication: PRODUCT USED FOR UNKNOWN INDICATION
     Route: 065
     Dates: start: 20140519, end: 20140528

REACTIONS (4)
  - Pulmonary tuberculosis [Unknown]
  - Hypoglycaemia [Recovered/Resolved]
  - Drug-induced liver injury [Not Recovered/Not Resolved]
  - Benign prostatic hyperplasia [Unknown]
